FAERS Safety Report 25030323 (Version 1)
Quarter: 2025Q1

REPORT INFORMATION
  Report Type: Spontaneous
  Country: US (occurrence: US)
  Receive Date: 20250303
  Receipt Date: 20250303
  Transmission Date: 20250408
  Serious: Yes (Other)
  Sender: ABBVIE
  Company Number: US-ABBVIE-6158530

PATIENT
  Sex: Male

DRUGS (1)
  1. SAVELLA [Suspect]
     Active Substance: MILNACIPRAN HYDROCHLORIDE
     Indication: Fibromyalgia
     Route: 048

REACTIONS (3)
  - Intervertebral disc operation [Unknown]
  - Pain [Not Recovered/Not Resolved]
  - Nervous system disorder [Unknown]
